FAERS Safety Report 25831659 (Version 1)
Quarter: 2025Q3

REPORT INFORMATION
  Report Type: Spontaneous
  Country: US (occurrence: None)
  Receive Date: 20250919
  Receipt Date: 20250919
  Transmission Date: 20251020
  Serious: Yes (Hospitalization)
  Sender: FDA-CTU
  Company Number: None

PATIENT
  Age: 63 Year
  Sex: Male

DRUGS (1)
  1. BRAFTOVI [Suspect]
     Active Substance: ENCORAFENIB
     Indication: Colon cancer
     Dosage: 300 MG DAILY ORAL ?
     Route: 048
     Dates: start: 20250513

REACTIONS (2)
  - Device dislocation [None]
  - Haemorrhage [None]

NARRATIVE: CASE EVENT DATE: 20250528
